FAERS Safety Report 13426366 (Version 1)
Quarter: 2017Q2

REPORT INFORMATION
  Report Type: Spontaneous
  Country: US (occurrence: US)
  Receive Date: 20170411
  Receipt Date: 20170411
  Transmission Date: 20170830
  Serious: No
  Sender: FDA-Public Use
  Company Number: US-LUPIN PHARMACEUTICALS INC.-2017-00655

PATIENT
  Age: 25 Year
  Sex: Female

DRUGS (1)
  1. FALLBACK SOLO [Suspect]
     Active Substance: LEVONORGESTREL
     Indication: CONTRACEPTION
     Dosage: 1.5 MG,QD,
     Route: 048
     Dates: start: 20170205, end: 20170205

REACTIONS (2)
  - Abdominal pain [Not Recovered/Not Resolved]
  - Menorrhagia [Not Recovered/Not Resolved]

NARRATIVE: CASE EVENT DATE: 20170208
